FAERS Safety Report 23835145 (Version 1)
Quarter: 2024Q2

REPORT INFORMATION
  Report Type: Spontaneous
  Country: US (occurrence: None)
  Receive Date: 20240509
  Receipt Date: 20240509
  Transmission Date: 20240716
  Serious: No
  Sender: FDA-Public Use
  Company Number: 2024A105039

PATIENT

DRUGS (2)
  1. FULVESTRANT [Suspect]
     Active Substance: FULVESTRANT
     Route: 030
  2. IBRANCE [Suspect]
     Active Substance: PALBOCICLIB
     Route: 048

REACTIONS (7)
  - Dizziness [Unknown]
  - Abdominal discomfort [Unknown]
  - Anxiety [Unknown]
  - Panic attack [Unknown]
  - Injection site pain [Unknown]
  - Movement disorder [Unknown]
  - Alopecia [Unknown]
